FAERS Safety Report 4454204-2 (Version None)
Quarter: 2004Q3

REPORT INFORMATION
  Report Type: 
  Country: None (occurrence: None)
  Receive Date: 20040826
  Receipt Date: 20040722
  Transmission Date: 20050211
  Serious: No
  Sender: FDA-Public Use
  Company Number: WAES 0407USA01907

PATIENT
  Age: 54 Year
  Sex: Male

DRUGS (22)
  1. ZETIA [Suspect]
     Indication: DYSLIPIDAEMIA
     Dosage: 10 MG/DAILY/PO
     Route: 048
     Dates: start: 20040501
  2. ABILIFY [Concomitant]
  3. ACTOS [Concomitant]
  4. ALLEGRA [Concomitant]
  5. AMARYL [Concomitant]
  6. ANTIVERT [Concomitant]
  7. ARTANE [Concomitant]
  8. DEMADEX [Concomitant]
  9. FLOVENT [Concomitant]
  10. HUMULIN R [Concomitant]
  11. HYTRIN [Concomitant]
  12. K-DUR 10 [Concomitant]
  13. LANTUS [Concomitant]
  14. MAXAIR [Concomitant]
  15. NEURONTIN [Concomitant]
  16. NIZORAL [Concomitant]
  17. NORVASC [Concomitant]
  18. PREVACID [Concomitant]
  19. PROLIXIN [Concomitant]
  20. STARLIX [Concomitant]
  21. ACETAMINOPHEN [Concomitant]
  22. ASPIRIN [Concomitant]

REACTIONS (1)
  - BLOOD CREATINE PHOSPHOKINASE INCREASED [None]
